FAERS Safety Report 9746578 (Version 2)
Quarter: 2014Q1

REPORT INFORMATION
  Report Type: Spontaneous
  Country: US (occurrence: US)
  Receive Date: 20131211
  Receipt Date: 20140109
  Transmission Date: 20141002
  Serious: Yes (Other)
  Sender: FDA-Public Use
  Company Number: US-PFIZER INC-2013353090

PATIENT
  Age: 50 Year
  Sex: Male
  Weight: 76.19 kg

DRUGS (6)
  1. TIKOSYN [Suspect]
     Indication: VENTRICULAR TACHYCARDIA
     Dosage: 500 UG, 2X/DAY
     Route: 048
     Dates: start: 20130115
  2. TIKOSYN [Suspect]
     Dosage: UNK
     Dates: start: 2007
  3. COREG [Concomitant]
     Dosage: UNK
  4. ALTACE [Concomitant]
     Dosage: UNK
  5. SYNTHROID [Concomitant]
     Dosage: UNK
  6. BABY ASPIRIN [Concomitant]
     Dosage: UNK

REACTIONS (5)
  - Lipoma [Unknown]
  - Impaired healing [Unknown]
  - Wound infection [Unknown]
  - Staphylococcal infection [Unknown]
  - Off label use [Unknown]
